FAERS Safety Report 4380547-7 (Version None)
Quarter: 2004Q2

REPORT INFORMATION
  Report Type: 
  Country: None (occurrence: None)
  Receive Date: 20040618
  Receipt Date: 20040316
  Transmission Date: 20050107
  Serious: Yes (Other)
  Sender: FDA-Public Use
  Company Number: US-MERCK-0403USA01478

PATIENT
  Sex: Female
  Weight: 59 kg

DRUGS (3)
  1. CORTICOSTEROIDS (UNSPECIFIED) [Concomitant]
     Route: 065
  2. ADVAIR DISKUS 100/50 [Concomitant]
     Route: 065
  3. SINGULAIR [Suspect]
     Indication: ASTHMA
     Route: 048
     Dates: start: 19990101

REACTIONS (1)
  - ALLERGIC GRANULOMATOUS ANGIITIS [None]
